FAERS Safety Report 7443767-0 (Version None)
Quarter: 2011Q2

REPORT INFORMATION
  Report Type: 
  Country: None (occurrence: None)
  Receive Date: 20110428
  Receipt Date: 20110419
  Transmission Date: 20111010
  Serious: Yes (Other)
  Sender: FDA-Public Use
  Company Number: US-AMGEN-USACT2011020586

PATIENT
  Sex: Male
  Weight: 76.36 kg

DRUGS (2)
  1. GEMCITABINE [Concomitant]
     Dosage: 5790 MG, UNK
     Dates: start: 20100727
  2. PANITUMUMAB [Suspect]
     Indication: ADENOCARCINOMA PANCREAS
     Dosage: 896 MG, UNK
     Dates: start: 20100727

REACTIONS (1)
  - LYMPHOCYTE COUNT DECREASED [None]
